FAERS Safety Report 8215225-7 (Version None)
Quarter: 2012Q1

REPORT INFORMATION
  Report Type: 
  Country: None (occurrence: None)
  Receive Date: 20120316
  Receipt Date: 20120309
  Transmission Date: 20120608
  Serious: No
  Sender: FDA-Public Use
  Company Number: US-BAYER-2012-025501

PATIENT
  Age: 28 Year
  Sex: Male
  Weight: 63.492 kg

DRUGS (1)
  1. ALEVE (CAPLET) [Suspect]
     Indication: PRODUCT USED FOR UNKNOWN INDICATION
     Dosage: 2 TABS USED ONLY ONE TIME
     Route: 048
     Dates: start: 20120309, end: 20120309

REACTIONS (4)
  - EYE PRURITUS [None]
  - PRURITUS [None]
  - RASH [None]
  - EYE IRRITATION [None]
